FAERS Safety Report 4357821-3 (Version None)
Quarter: 2004Q2

REPORT INFORMATION
  Report Type: 
  Country: None (occurrence: None)
  Receive Date: 20040512
  Receipt Date: 20040504
  Transmission Date: 20050107
  Serious: Yes (Disabling)
  Sender: FDA-Public Use
  Company Number: 0104-1622

PATIENT
  Age: 51 Year
  Sex: Female
  Weight: 74.8435 kg

DRUGS (1)
  1. ADVICOR [Suspect]
     Indication: BLOOD CHOLESTEROL INCREASED
     Dosage: 1 TABLET (S) QHS PO
     Route: 048
     Dates: start: 20031001, end: 20040502

REACTIONS (4)
  - CONTUSION [None]
  - FALL [None]
  - IMPAIRED WORK ABILITY [None]
  - MUSCULAR WEAKNESS [None]
